FAERS Safety Report 9251244 (Version 1)
Quarter: 2013Q1

REPORT INFORMATION
  Report Type: Spontaneous
  Country: US (occurrence: None)
  Receive Date: 20130305
  Receipt Date: 20130305
  Transmission Date: 20140127
  Serious: Yes (Hospitalization)
  Sender: FDA-Public Use
  Company Number: 163-21880-12060318 (0)

PATIENT
  Age: 81 Year
  Sex: Female
  Weight: 64.3 kg

DRUGS (14)
  1. REVLIMID [Suspect]
     Indication: PLASMA CELL MYELOMA
     Dosage: 25 MG, 21 IN 21 D
     Route: 048
     Dates: start: 20101028, end: 20101229
  2. COREG CR (CARVEDILOL) (CAPSULES) [Concomitant]
  3. DEXAMETHASONE (DEXAMETHASONE) [Concomitant]
  4. ARICEPT (DONEPEZIL HYDROCHLORIDE) (TABLETS) [Concomitant]
  5. SYNTHROID (LEVOTHYROXINE SODIUM) [Concomitant]
  6. LISINOPRIL (LISINOPRIL) [Concomitant]
  7. ZOMETA (ZOLEDRONIC ACID) [Concomitant]
  8. ADVIL (IBUPROFEN) (TABLETS) [Concomitant]
  9. ASPIRIN (ACETYLSALICYLIC ACID) (ENTERIC-COATED TABLET) [Concomitant]
  10. BENZONATRATE (BENZONATATE) (CAPSULES) [Concomitant]
  11. DOXYCYCLINE (DOXYCLCLINE) (TABLETS) [Concomitant]
  12. LORTAB (VICODIN) (TABLETS) [Concomitant]
  13. MULTIVITAMINS (MULTIVITAMINS) (TABLETS) [Concomitant]
  14. XGEVA (DENOSUMAB) [Concomitant]

REACTIONS (6)
  - Cardiac arrest [None]
  - Pancytopenia [None]
  - Pneumonia [None]
  - Sepsis [None]
  - Renal failure acute [None]
  - Cardiac failure congestive [None]
